FAERS Safety Report 4535100-9 (Version None)
Quarter: 2004Q4

REPORT INFORMATION
  Report Type: 
  Country: None (occurrence: None)
  Receive Date: 20041222
  Receipt Date: 20041104
  Transmission Date: 20050328
  Serious: Yes (Life-Threatening, Hospitalization, Other)
  Sender: FDA-Public Use
  Company Number: US-MERCK-0411USA00864

PATIENT
  Age: 85 Year
  Sex: Female
  Weight: 69 kg

DRUGS (7)
  1. FOSAMAX [Suspect]
     Indication: OSTEOPOROSIS
     Route: 048
     Dates: start: 20030523, end: 20041020
  2. ASPIRIN [Concomitant]
     Indication: CARDIAC DISORDER
     Route: 065
     Dates: end: 20041020
  3. ZETIA [Concomitant]
     Route: 048
  4. PREMARIN [Concomitant]
     Route: 065
  5. LASIX [Concomitant]
     Indication: OEDEMA
     Route: 065
     Dates: end: 20041020
  6. ALEVE [Concomitant]
     Route: 065
  7. POTASSIUM CHLORIDE [Concomitant]
     Indication: OEDEMA
     Route: 065

REACTIONS (9)
  - BLOOD PRESSURE SYSTOLIC INCREASED [None]
  - CAROTID BRUIT [None]
  - CRACKLES LUNG [None]
  - HIATUS HERNIA [None]
  - LOCALISED OSTEOARTHRITIS [None]
  - OESOPHAGITIS HAEMORRHAGIC [None]
  - PALLOR [None]
  - TACHYCARDIA [None]
  - ULCER [None]
